FAERS Safety Report 16079207 (Version 1)
Quarter: 2019Q1

REPORT INFORMATION
  Report Type: Spontaneous
  Country: US (occurrence: US)
  Receive Date: 20190315
  Receipt Date: 20190315
  Transmission Date: 20190418
  Serious: No
  Sender: FDA-Public Use
  Company Number: US-TEVA-2019-US-1014129

PATIENT
  Sex: Male

DRUGS (4)
  1. ALPRAZOLAM ACTAVIS TABLETS [Suspect]
     Active Substance: ALPRAZOLAM
     Indication: ANXIETY
     Dosage: DOSE STRENGTH 2, FOR MANY YEARS
     Route: 065
  2. TRAMADOL. [Suspect]
     Active Substance: TRAMADOL
     Route: 065
  3. ALPRAZOLAM ACTAVIS TABLETS [Suspect]
     Active Substance: ALPRAZOLAM
     Indication: PANIC ATTACK
  4. GABAPENTIN. [Suspect]
     Active Substance: GABAPENTIN
     Route: 065

REACTIONS (6)
  - Mood altered [Unknown]
  - Product taste abnormal [Unknown]
  - Irritability [Unknown]
  - Drug ineffective [Unknown]
  - Insomnia [Unknown]
  - Product physical issue [Unknown]
